FAERS Safety Report 10488209 (Version 2)
Quarter: 2015Q1

REPORT INFORMATION
  Report Type: Spontaneous
  Country: IT (occurrence: IT)
  Receive Date: 20141002
  Receipt Date: 20150213
  Transmission Date: 20150720
  Serious: Yes (Hospitalization)
  Sender: FDA-Public Use
  Company Number: IT-ACCORD-026231

PATIENT
  Age: 49 Year
  Sex: Female
  Weight: 57 kg

DRUGS (2)
  1. HERCEPTIN ROCHE [Concomitant]
     Indication: BREAST CANCER
     Dosage: STRENGTH: 150 MG
     Route: 042
     Dates: start: 20140819, end: 20140916
  2. ACCORD DOCETAXEL [Suspect]
     Active Substance: DOCETAXEL
     Indication: BREAST CANCER
     Dosage: EXPIRATION DATE: 31-MAR-2016, STRENGTH: 160 MG/8 ML
     Route: 042
     Dates: start: 20140819, end: 20140916

REACTIONS (6)
  - Cough [Recovered/Resolved]
  - Feeling hot [Recovered/Resolved]
  - Headache [Recovered/Resolved]
  - Laryngeal discomfort [Recovered/Resolved]
  - Hypotension [Recovered/Resolved]
  - Dyspnoea [Recovered/Resolved]

NARRATIVE: CASE EVENT DATE: 20140916
